FAERS Safety Report 4506942-0 (Version None)
Quarter: 2004Q4

REPORT INFORMATION
  Report Type: 
  Country: None (occurrence: None)
  Receive Date: 20041025
  Receipt Date: 20040723
  Transmission Date: 20050328
  Serious: Yes (Hospitalization)
  Sender: FDA-Public Use
  Company Number: US-JNJFOC-20040706672

PATIENT
  Age: 49 Year
  Sex: Female

DRUGS (4)
  1. INFLIXIMAB  (INFLIXIMAB,  RECOMBINANT) LYOPHILIZIDE POWDER [Suspect]
     Indication: RHEUMATOID ARTHRITIS
     Dosage: INTRAVENOUS
     Route: 042
     Dates: start: 20010815, end: 20011023
  2. PREDNISONE [Concomitant]
  3. PREVACID [Concomitant]
  4. EVOXAC [Concomitant]

REACTIONS (1)
  - DEHYDRATION [None]
